FAERS Safety Report 14595191 (Version 1)
Quarter: 2018Q1

REPORT INFORMATION
  Report Type: Spontaneous
  Country: US (occurrence: US)
  Receive Date: 20180302
  Receipt Date: 20180302
  Transmission Date: 20180509
  Serious: No
  Sender: FDA-Public Use
  Company Number: US-AKORN PHARMACEUTICALS-2017AKN00217

PATIENT
  Age: 24 Year
  Sex: Male

DRUGS (15)
  1. MYORISAN [Suspect]
     Active Substance: ISOTRETINOIN
     Indication: ACNE CONGLOBATA
  2. BENZOYL PEROXIDE 5% [Concomitant]
     Dosage: UNK, 1X/DAY
     Route: 061
  3. FLONASE [Concomitant]
     Active Substance: FLUTICASONE PROPIONATE
  4. MYORISAN [Suspect]
     Active Substance: ISOTRETINOIN
     Indication: ACNE CONGLOBATA
  5. KETODAN KIT 2% TOPICAL COMBO PACK [Concomitant]
  6. METROCREAM 0.75% TOPICAL [Concomitant]
     Dosage: UNK, 2X/DAY
     Route: 061
  7. MUPIROCIN. [Concomitant]
     Active Substance: MUPIROCIN
     Dosage: UNK UNK, 2X/DAY
     Route: 061
  8. MYORISAN [Suspect]
     Active Substance: ISOTRETINOIN
     Indication: HIDRADENITIS
  9. HYDROCORTISONE. [Concomitant]
     Active Substance: HYDROCORTISONE
     Dosage: UNK, 2X/DAY
     Route: 061
  10. MINOCYCLINE [Concomitant]
     Active Substance: MINOCYCLINE\MINOCYCLINE HYDROCHLORIDE
     Dosage: 1 DOSAGE UNITS, 2X/DAY
     Route: 048
  11. MYORISAN [Suspect]
     Active Substance: ISOTRETINOIN
     Indication: ACNE
     Dosage: 20 MG, 2X/DAY
     Route: 048
     Dates: start: 20170123, end: 2017
  12. MYORISAN [Suspect]
     Active Substance: ISOTRETINOIN
     Dosage: UNK
     Dates: start: 20170113, end: 2017
  13. SYMBICORT HFA AEROSOL INHALER [Concomitant]
  14. TRIAMCINOLONE ACETONIDE. [Concomitant]
     Active Substance: TRIAMCINOLONE ACETONIDE
  15. SINGULAIR [Concomitant]
     Active Substance: MONTELUKAST SODIUM

REACTIONS (3)
  - Hidradenitis [Not Recovered/Not Resolved]
  - Acne [Not Recovered/Not Resolved]
  - Acne conglobata [Not Recovered/Not Resolved]

NARRATIVE: CASE EVENT DATE: 201701
